FAERS Safety Report 8459047-0 (Version None)
Quarter: 2012Q2

REPORT INFORMATION
  Report Type: 
  Country: None (occurrence: None)
  Receive Date: 20120622
  Receipt Date: 20120611
  Transmission Date: 20120825
  Serious: Yes (Hospitalization)
  Sender: FDA-Public Use
  Company Number: JP-FRI-1000031510

PATIENT
  Sex: Female
  Weight: 40 kg

DRUGS (8)
  1. LEXAPRO [Suspect]
     Dosage: 20 MG
     Route: 048
     Dates: start: 20120507, end: 20120524
  2. REMERON [Concomitant]
     Indication: DEPRESSION
     Dosage: 45 MG
     Route: 048
     Dates: start: 20120427, end: 20120524
  3. LEXAPRO [Suspect]
     Indication: DEPRESSION
     Dosage: 10 MG
     Route: 048
     Dates: start: 20120220, end: 20120506
  4. EBRANTIL [Concomitant]
     Indication: DYSURIA
     Dosage: 60 MG
     Route: 048
     Dates: start: 20111118, end: 20120524
  5. ESTAZOLAM [Concomitant]
     Indication: INSOMNIA
     Dosage: 4 MG
     Route: 048
     Dates: start: 20120127, end: 20120524
  6. MEILAX [Concomitant]
     Indication: DEPRESSION
     Dosage: 45 MG
     Route: 048
     Dates: start: 20110428, end: 20120524
  7. STANZOME OD [Concomitant]
     Indication: GASTRIC ULCER
     Dosage: 15 MG
     Route: 048
     Dates: start: 20110430, end: 20120524
  8. MAGMITT [Concomitant]
     Indication: CONSTIPATION
     Dosage: 2640 MG
     Route: 048
     Dates: start: 20111220, end: 20120524

REACTIONS (2)
  - VOMITING [None]
  - PNEUMONIA ASPIRATION [None]
